FAERS Safety Report 9419136 (Version 1)
Quarter: 2013Q3

REPORT INFORMATION
  Report Type: Spontaneous
  Country: US (occurrence: None)
  Receive Date: 20130722
  Receipt Date: 20130722
  Transmission Date: 20140515
  Serious: No
  Sender: FDA-Public Use
  Company Number: None

PATIENT
  Age: 37 Year
  Sex: Female

DRUGS (2)
  1. RITUXAN [Suspect]
     Dosage: RITUXAN 500MG SDV(10MG/ML50ML)?INFUSE 1GM INTRAVENOUSLY DAILY FOR 2 DAYS. THEN START MAINTENANCE DOSE 6-8 WEEKS LATER
     Route: 058
  2. COPAXONE [Suspect]
     Dosage: COPAXONE 20MG PFS (30/PK)

REACTIONS (5)
  - Asthenia [None]
  - Headache [None]
  - Drooling [None]
  - Blindness transient [None]
  - Facial pain [None]
